FAERS Safety Report 10243750 (Version 1)
Quarter: 2014Q2

REPORT INFORMATION
  Report Type: Spontaneous
  Country: CH (occurrence: CH)
  Receive Date: 20140618
  Receipt Date: 20140618
  Transmission Date: 20141212
  Serious: Yes (Hospitalization)
  Sender: FDA-Public Use
  Company Number: CH-SA-2014SA080366

PATIENT
  Sex: Male

DRUGS (4)
  1. ZALTRAP [Suspect]
     Indication: PRODUCT USED FOR UNKNOWN INDICATION
     Route: 065
  2. FOLINIC ACID [Concomitant]
  3. 5-FU [Concomitant]
  4. IRINOTECAN [Concomitant]

REACTIONS (3)
  - Bone marrow failure [Unknown]
  - Mucosal inflammation [Unknown]
  - Diarrhoea [Unknown]
